FAERS Safety Report 5549967-9 (Version None)
Quarter: 2007Q4

REPORT INFORMATION
  Report Type: 
  Country: None (occurrence: None)
  Receive Date: 20071128
  Receipt Date: 20070117
  Transmission Date: 20080405
  Serious: Yes (Hospitalization, Other)
  Sender: FDA-Public Use
  Company Number: 2007004874

PATIENT
  Age: 61 Year
  Sex: Female
  Weight: 88.5 kg

DRUGS (2)
  1. LIPITOR [Suspect]
     Indication: BLOOD CHOLESTEROL
     Dosage: 20 MG (20 MG,1 IN D)
     Dates: start: 20041201, end: 20070117
  2. GLUCOPHAGE [Concomitant]

REACTIONS (6)
  - ABDOMINAL PAIN UPPER [None]
  - APHTHOUS STOMATITIS [None]
  - ASTHENIA [None]
  - CHEST PAIN [None]
  - MYALGIA [None]
  - OEDEMA PERIPHERAL [None]
